FAERS Safety Report 14583362 (Version 1)
Quarter: 2018Q1

REPORT INFORMATION
  Report Type: Spontaneous
  Country: GB (occurrence: GB)
  Receive Date: 20180228
  Receipt Date: 20180228
  Transmission Date: 20180509
  Serious: Yes (Life-Threatening, Hospitalization)
  Sender: FDA-Public Use
  Company Number: GB-OTSUKA-DJ201401275

PATIENT

DRUGS (7)
  1. VALPROATE [Concomitant]
     Active Substance: VALPROIC ACID
     Route: 065
  2. CLOZAPINE. [Concomitant]
     Active Substance: CLOZAPINE
     Route: 065
  3. KWELL [Concomitant]
     Active Substance: LINDANE
     Route: 065
  4. ABILIFY [Suspect]
     Active Substance: ARIPIPRAZOLE
     Indication: BIPOLAR DISORDER
     Route: 048
     Dates: start: 201203, end: 20120831
  5. PRIADEL [Concomitant]
     Active Substance: LITHIUM
     Route: 065
  6. LEVOTHYROXINE. [Concomitant]
     Active Substance: LEVOTHYROXINE
     Route: 065
  7. PRO-BANTHINE [Concomitant]
     Active Substance: PROPANTHELINE BROMIDE
     Route: 065

REACTIONS (4)
  - Hypertonia [Unknown]
  - Pyrexia [Unknown]
  - Catatonia [Recovered/Resolved]
  - Mental impairment [Recovering/Resolving]

NARRATIVE: CASE EVENT DATE: 20120831
